FAERS Safety Report 5466156-7 (Version None)
Quarter: 2007Q3

REPORT INFORMATION
  Report Type: 
  Country: None (occurrence: None)
  Receive Date: 20070924
  Receipt Date: 20070914
  Transmission Date: 20080115
  Serious: Yes (Other)
  Sender: FDA-Public Use
  Company Number: US-AMGEN-KDL238117

PATIENT
  Sex: Female
  Weight: 77.6 kg

DRUGS (6)
  1. ENBREL [Suspect]
     Indication: RHEUMATOID ARTHRITIS
     Route: 058
     Dates: start: 20070409, end: 20070409
  2. ZOLOFT [Concomitant]
  3. XANAX [Concomitant]
  4. AMBIEN [Concomitant]
  5. PRILOSEC [Concomitant]
  6. ZANTAC [Concomitant]

REACTIONS (2)
  - DERMATITIS ALLERGIC [None]
  - HYPERSENSITIVITY [None]
